FAERS Safety Report 15843154 (Version 1)
Quarter: 2019Q1

REPORT INFORMATION
  Report Type: Spontaneous
  Country: US (occurrence: US)
  Receive Date: 20190118
  Receipt Date: 20190118
  Transmission Date: 20190417
  Serious: Yes (Death)
  Sender: FDA-Public Use
  Company Number: US-X-GEN PHARMACEUTICALS, INC-2061444

PATIENT
  Sex: Female
  Weight: 35.09 kg

DRUGS (1)
  1. STREPTOMYCIN [Suspect]
     Active Substance: STREPTOMYCIN\STREPTOMYCIN SULFATE
     Route: 030
     Dates: start: 20171117, end: 20181219

REACTIONS (1)
  - Death [Fatal]

NARRATIVE: CASE EVENT DATE: 20181219
